FAERS Safety Report 23304013 (Version 1)
Quarter: 2023Q4

REPORT INFORMATION
  Report Type: Spontaneous
  Country: CN (occurrence: CN)
  Receive Date: 20231215
  Receipt Date: 20231215
  Transmission Date: 20240109
  Serious: Yes (Death, Hospitalization, Other)
  Sender: FDA-Public Use
  Company Number: CN-009507513-2312CHN005577

PATIENT
  Age: 59 Year
  Sex: Male

DRUGS (2)
  1. PEMBROLIZUMAB [Suspect]
     Active Substance: PEMBROLIZUMAB
     Indication: Primary pulmonary melanoma
     Dosage: 200MG
  2. IPILIMUMAB [Concomitant]
     Active Substance: IPILIMUMAB
     Indication: Primary pulmonary melanoma
     Dosage: 50MG

REACTIONS (3)
  - Hepatotoxicity [Fatal]
  - Skin toxicity [Recovering/Resolving]
  - Product use in unapproved indication [Unknown]
